FAERS Safety Report 13257307 (Version 1)
Quarter: 2017Q1

REPORT INFORMATION
  Report Type: Spontaneous
  Country: CN (occurrence: CN)
  Receive Date: 20170221
  Receipt Date: 20170221
  Transmission Date: 20170428
  Serious: Yes (Other)
  Sender: FDA-Public Use
  Company Number: PHHY2017CN025620

PATIENT
  Age: 46 Year
  Sex: Male
  Weight: 42.5 kg

DRUGS (5)
  1. MECOBALAMIN [Concomitant]
     Active Substance: METHYLCOBALAMIN
     Indication: PRODUCT USED FOR UNKNOWN INDICATION
     Dosage: 500 UG, TID
     Route: 048
     Dates: start: 20160823, end: 20161221
  2. TEGRETOL [Suspect]
     Active Substance: CARBAMAZEPINE
     Indication: EPILEPSY
     Dosage: 0.2 G, TID
     Route: 048
     Dates: start: 20161201, end: 20161203
  3. GALENIC /FLUPENTIXOL/MELITRACEN/ [Concomitant]
     Indication: DEPRESSION
     Dosage: 10.5 MG, QD
     Route: 048
     Dates: start: 20160823, end: 20161221
  4. CACIT VITAMIN D3 [Concomitant]
     Active Substance: CALCIUM CARBONATE\CHOLECALCIFEROL
     Indication: OSTEOPOROSIS
     Dosage: 600 MG, QD
     Route: 048
     Dates: start: 20160823, end: 20161221
  5. TEGRETOL [Suspect]
     Active Substance: CARBAMAZEPINE
     Indication: TREMOR

REACTIONS (6)
  - Asthenia [Recovered/Resolved]
  - Nausea [Recovered/Resolved]
  - Gait disturbance [Recovered/Resolved]
  - Vomiting [Recovered/Resolved]
  - Headache [Recovered/Resolved]
  - Dizziness [Recovered/Resolved]

NARRATIVE: CASE EVENT DATE: 20161202
